FAERS Safety Report 6108370-3 (Version None)
Quarter: 2009Q1

REPORT INFORMATION
  Report Type: 
  Country: None (occurrence: None)
  Receive Date: 20090309
  Receipt Date: 20090225
  Transmission Date: 20090719
  Serious: Yes (Other)
  Sender: FDA-Public Use
  Company Number: JP-PFIZER INC-2009178251

PATIENT

DRUGS (3)
  1. ZOLOFT [Suspect]
     Dosage: UNK
     Route: 048
  2. TETRAMIDE [Concomitant]
     Route: 048
  3. ETIZOLAM [Concomitant]
     Route: 048

REACTIONS (1)
  - NEUROLEPTIC MALIGNANT SYNDROME [None]
